FAERS Safety Report 21577014 (Version 1)
Quarter: 2022Q4

REPORT INFORMATION
  Report Type: Spontaneous
  Country: CA (occurrence: None)
  Receive Date: 20221110
  Receipt Date: 20221110
  Transmission Date: 20230113
  Serious: Yes (Other)
  Sender: FDA-Public Use
  Company Number: CA-PFIZER INC-202201261133

PATIENT
  Age: 70 Year
  Sex: Female

DRUGS (3)
  1. METHOTREXATE [Suspect]
     Active Substance: METHOTREXATE
     Indication: Rheumatoid arthritis
     Route: 065
     Dates: start: 202205
  2. METHOTREXATE [Suspect]
     Active Substance: METHOTREXATE
     Route: 042
  3. HYDROXYCHLOROQUINE SULFATE [Concomitant]
     Active Substance: HYDROXYCHLOROQUINE SULFATE
     Route: 065

REACTIONS (18)
  - Cerebrovascular accident [Unknown]
  - Hepatitis [Unknown]
  - Feeling abnormal [Unknown]
  - Hepatic enzyme increased [Recovering/Resolving]
  - Liver function test increased [Recovered/Resolved]
  - Fatigue [Unknown]
  - Drug intolerance [Unknown]
  - Bone erosion [Unknown]
  - Gastrooesophageal reflux disease [Unknown]
  - Hiatus hernia [Not Recovered/Not Resolved]
  - Chronic gastritis [Not Recovered/Not Resolved]
  - COVID-19 [Recovered/Resolved]
  - Pain in extremity [Unknown]
  - Arthralgia [Unknown]
  - Peripheral swelling [Unknown]
  - Joint swelling [Unknown]
  - Musculoskeletal stiffness [Unknown]
  - Therapeutic product effect incomplete [Unknown]

NARRATIVE: CASE EVENT DATE: 20210801
